FAERS Safety Report 24571218 (Version 1)
Quarter: 2024Q4

REPORT INFORMATION
  Report Type: Spontaneous
  Country: PL (occurrence: PL)
  Receive Date: 20241101
  Receipt Date: 20241101
  Transmission Date: 20250115
  Serious: Yes (Other)
  Sender: AUROBINDO
  Company Number: PL-SUN PHARMACEUTICAL INDUSTRIES LTD-2024RR-473832

PATIENT
  Age: 58 Year
  Sex: Female

DRUGS (4)
  1. IRINOTECAN [Suspect]
     Active Substance: IRINOTECAN
     Indication: Pancreatic carcinoma
     Dosage: UNK
     Route: 065
     Dates: start: 20231001
  2. OXALIPLATIN [Suspect]
     Active Substance: OXALIPLATIN
     Indication: Pancreatic carcinoma
     Dosage: UNK
     Route: 065
     Dates: start: 20231001
  3. LEUCOVORIN CALCIUM [Suspect]
     Active Substance: LEUCOVORIN CALCIUM
     Indication: Pancreatic carcinoma
     Dosage: UNK
     Route: 065
     Dates: start: 20231001
  4. FLUOROURACIL [Suspect]
     Active Substance: FLUOROURACIL
     Indication: Pancreatic carcinoma
     Dosage: UNK
     Route: 065
     Dates: start: 20231001

REACTIONS (3)
  - Drug intolerance [Unknown]
  - Nausea [Unknown]
  - Vomiting [Unknown]
